FAERS Safety Report 7676725-1 (Version None)
Quarter: 2011Q3

REPORT INFORMATION
  Report Type: 
  Country: None (occurrence: None)
  Receive Date: 20110811
  Receipt Date: 20110804
  Transmission Date: 20111222
  Serious: Yes (Death, Hospitalization)
  Sender: FDA-Public Use
  Company Number: US-JNJFOC-20100700323

PATIENT
  Sex: Male
  Weight: 81.65 kg

DRUGS (7)
  1. LISINOPRIL [Concomitant]
     Indication: PRODUCT USED FOR UNKNOWN INDICATION
     Route: 048
  2. ASPIRIN [Suspect]
     Indication: PROPHYLAXIS
     Route: 048
     Dates: end: 20100605
  3. OXYCODONE HCL [Concomitant]
     Indication: BACK PAIN
     Dosage: 1-2 DAILY
     Route: 048
  4. LASIX [Concomitant]
  5. TYLENOL-500 [Concomitant]
  6. LEVOTHYROXINE SODIUM [Concomitant]
     Indication: PRODUCT USED FOR UNKNOWN INDICATION
     Route: 048
  7. ALDACTONE [Concomitant]

REACTIONS (6)
  - VOMITING [None]
  - DEATH [None]
  - ABDOMINAL PAIN UPPER [None]
  - BOWEL MOVEMENT IRREGULARITY [None]
  - OESOPHAGEAL VARICES HAEMORRHAGE [None]
  - NAUSEA [None]
